FAERS Safety Report 8856473 (Version 1)
Quarter: 2012Q4

REPORT INFORMATION
  Report Type: Spontaneous
  Country: ES (occurrence: None)
  Receive Date: 20121019
  Receipt Date: 20121019
  Transmission Date: 20130627
  Serious: Yes (Death, Other)
  Sender: FDA-Public Use
  Company Number: APL-2012-00210

PATIENT
  Age: 72 Year
  Sex: Male

DRUGS (1)
  1. PECFENT [Suspect]
     Indication: BREAKTHROUGH CANCER PAIN
     Dates: start: 2011

REACTIONS (3)
  - Drug dependence [None]
  - Aggression [None]
  - Drug abuse [None]
